FAERS Safety Report 5803126-0 (Version None)
Quarter: 2008Q3

REPORT INFORMATION
  Report Type: 
  Country: None (occurrence: None)
  Receive Date: 20080708
  Receipt Date: 20080627
  Transmission Date: 20090109
  Serious: Yes (Hospitalization, Other)
  Sender: FDA-Public Use
  Company Number: US-MERCK-0705USA05335

PATIENT
  Age: 51 Year
  Sex: Male

DRUGS (5)
  1. FOSAMAX [Suspect]
     Indication: OSTEOPOROSIS
     Route: 048
     Dates: start: 20000401, end: 20060501
  2. NITROGLYCERIN [Concomitant]
     Indication: CHEST PAIN
     Route: 065
     Dates: start: 19890101
  3. ZOLOFT [Concomitant]
     Route: 065
     Dates: start: 20000401
  4. TRAZODONE HYDROCHLORIDE [Concomitant]
     Route: 065
     Dates: start: 20000401
  5. KLONOPIN [Concomitant]
     Route: 065
     Dates: start: 20000401

REACTIONS (28)
  - ANXIETY [None]
  - ARTHRALGIA [None]
  - BRADYCARDIA [None]
  - CHEST PAIN [None]
  - DENTAL CARIES [None]
  - DEPRESSION [None]
  - DRY MOUTH [None]
  - FALL [None]
  - HYPERCHLORHYDRIA [None]
  - HYPERKERATOSIS [None]
  - HYPERTENSION [None]
  - HYPOGONADISM [None]
  - HYPOPHOSPHATAEMIA [None]
  - LIP AND/OR ORAL CAVITY CANCER [None]
  - MICTURITION URGENCY [None]
  - MUSCLE SPASMS [None]
  - OSTEONECROSIS [None]
  - PAIN [None]
  - PANCYTOPENIA [None]
  - POST-TRAUMATIC STRESS DISORDER [None]
  - RADIATION MUCOSITIS [None]
  - RHEUMATOID ARTHRITIS [None]
  - ROAD TRAFFIC ACCIDENT [None]
  - SLEEP DISORDER [None]
  - THROAT CANCER [None]
  - TOOTH FRACTURE [None]
  - TOOTH INJURY [None]
  - TOOTHACHE [None]
